FAERS Safety Report 16470205 (Version 1)
Quarter: 2019Q2

REPORT INFORMATION
  Report Type: Spontaneous
  Country: US (occurrence: US)
  Receive Date: 20190514
  Receipt Date: 20190514
  Transmission Date: 20190711
  Serious: Yes (Other)
  Sender: FDA-Public Use
  Company Number: None

PATIENT
  Age: 72 Year
  Sex: Female

DRUGS (13)
  1. PEPCID [Concomitant]
     Active Substance: FAMOTIDINE
  2. LOPROX TOP CREAM [Concomitant]
  3. LOVOTHYROXINE [Concomitant]
  4. CLINDAMYCIN. [Concomitant]
     Active Substance: CLINDAMYCIN
  5. TRIMO-SON VAGL GEL [Concomitant]
  6. LOSARTAN. [Concomitant]
     Active Substance: LOSARTAN
  7. TROSPIUM [Concomitant]
     Active Substance: TROSPIUM
  8. ADEMPAS [Suspect]
     Active Substance: RIOCIGUAT
     Indication: PULMONARY HYPERTENSION
     Route: 048
     Dates: start: 201803
  9. WARFARIN [Concomitant]
     Active Substance: WARFARIN
  10. LIPITOR [Concomitant]
     Active Substance: ATORVASTATIN CALCIUM
  11. PANTOPRAZOLE [Concomitant]
     Active Substance: PANTOPRAZOLE
  12. METFORMIN [Concomitant]
     Active Substance: METFORMIN HYDROCHLORIDE
  13. HYDROCORTISONE TOP CREAM [Concomitant]

REACTIONS (2)
  - Uterine leiomyoma [None]
  - Urine odour abnormal [None]

NARRATIVE: CASE EVENT DATE: 20190425
